FAERS Safety Report 18517091 (Version 1)
Quarter: 2020Q4

REPORT INFORMATION
  Report Type: Report from Study
  Country: DE (occurrence: DE)
  Receive Date: 20201118
  Receipt Date: 20201118
  Transmission Date: 20210114
  Serious: Yes (Other)
  Sender: FDA-Public Use
  Company Number: DE-TAKEDA-2020TUS050525

PATIENT
  Age: 51 Year
  Sex: Male

DRUGS (7)
  1. BORTEZOMIB. [Suspect]
     Active Substance: BORTEZOMIB
     Indication: PLASMA CELL MYELOMA
     Dosage: UNK
     Route: 065
  2. DARATUMUMAB [Suspect]
     Active Substance: DARATUMUMAB
     Indication: PLASMA CELL MYELOMA
     Dosage: UNK
     Route: 065
     Dates: start: 201509, end: 201511
  3. REVLIMID [Suspect]
     Active Substance: LENALIDOMIDE
     Indication: PLASMA CELL MYELOMA
     Dosage: UNK
     Route: 065
     Dates: start: 201607
  4. KYPROLIS [Suspect]
     Active Substance: CARFILZOMIB
     Indication: CONDITION AGGRAVATED
     Dosage: UNK
     Route: 065
     Dates: start: 201607
  5. REVLIMID [Suspect]
     Active Substance: LENALIDOMIDE
     Indication: CONDITION AGGRAVATED
     Dosage: UNK
     Route: 065
     Dates: start: 201509, end: 201511
  6. MELPHALAN. [Suspect]
     Active Substance: MELPHALAN
     Indication: STEM CELL TRANSPLANT
     Dosage: UNK
     Route: 065
     Dates: start: 201601, end: 201604
  7. DEXAMETHASONE. [Suspect]
     Active Substance: DEXAMETHASONE
     Indication: CONDITION AGGRAVATED
     Dosage: UNK
     Route: 065
     Dates: start: 201607

REACTIONS (4)
  - Plasma cell myeloma [Unknown]
  - Renal failure [Unknown]
  - Product use issue [Unknown]
  - Off label use [Unknown]
